FAERS Safety Report 4556582-2 (Version None)
Quarter: 2005Q1

REPORT INFORMATION
  Report Type: 
  Country: None (occurrence: None)
  Receive Date: 20050114
  Receipt Date: 20050103
  Transmission Date: 20050727
  Serious: Yes (Hospitalization, Other)
  Sender: FDA-Public Use
  Company Number: 211486

PATIENT

DRUGS (4)
  1. RITUXAN [Suspect]
     Indication: LYMPHOMA
  2. BENADRYL [Concomitant]
  3. STEROIDS NOS (STEROID NOS) [Concomitant]
  4. LEUKAPHERESIS (LEUKAPHERESIS) [Concomitant]

REACTIONS (2)
  - ANAPHYLACTIC REACTION [None]
  - WHITE BLOOD CELL COUNT INCREASED [None]
